FAERS Safety Report 5067592-3 (Version None)
Quarter: 2006Q3

REPORT INFORMATION
  Report Type: 
  Country: None (occurrence: None)
  Receive Date: 20060802
  Receipt Date: 20060615
  Transmission Date: 20061208
  Serious: Yes (Hospitalization, Other)
  Sender: FDA-Public Use
  Company Number: US-BAYER-200614158BWH

PATIENT
  Age: 44 Year
  Sex: Male

DRUGS (5)
  1. NEXAVAR [Suspect]
     Indication: MALIGNANT MELANOMA
     Dosage: TOTAL DAILY DOSE: 800 MG  UNIT DOSE: 200 MG
     Route: 048
     Dates: start: 20060505, end: 20060601
  2. TEMODAR [Suspect]
     Indication: MALIGNANT MELANOMA
     Dates: start: 20060401, end: 20060601
  3. DILANTIN [Concomitant]
     Dosage: TOTAL DAILY DOSE: 400 MG
  4. DEXAMETHASONE TAB [Concomitant]
  5. THALIDOMIDE [Concomitant]
     Dates: start: 20060401, end: 20060501

REACTIONS (3)
  - DISEASE PROGRESSION [None]
  - METASTASES TO CENTRAL NERVOUS SYSTEM [None]
  - THROMBOPHLEBITIS [None]
